FAERS Safety Report 13506211 (Version 1)
Quarter: 2017Q2

REPORT INFORMATION
  Report Type: Spontaneous
  Country: US (occurrence: US)
  Receive Date: 20170502
  Receipt Date: 20170502
  Transmission Date: 20170830
  Serious: No
  Sender: FDA-Public Use
  Company Number: US-ROCHE-1286000

PATIENT
  Sex: Female

DRUGS (3)
  1. AVASTIN [Suspect]
     Active Substance: BEVACIZUMAB
     Dosage: IN LEFT EYE
     Route: 031
     Dates: start: 20131003
  2. AVASTIN [Suspect]
     Active Substance: BEVACIZUMAB
     Indication: MACULAR DEGENERATION
     Dosage: IN RIGHT EYE
     Route: 031
  3. LUCENTIS [Concomitant]
     Active Substance: RANIBIZUMAB
     Route: 065

REACTIONS (1)
  - Eye haemorrhage [Not Recovered/Not Resolved]
